FAERS Safety Report 18989973 (Version 1)
Quarter: 2021Q1

REPORT INFORMATION
  Report Type: Spontaneous
  Country: US (occurrence: US)
  Receive Date: 20210310
  Receipt Date: 20210310
  Transmission Date: 20210420
  Serious: No
  Sender: FDA-Public Use
  Company Number: US-SA-2021SA080275

PATIENT
  Age: 12 Year
  Sex: Male

DRUGS (1)
  1. DUPIXENT [Suspect]
     Active Substance: DUPILUMAB
     Indication: 11-BETA-HYDROXYLASE DEFICIENCY
     Dosage: UNK
     Dates: start: 20210305, end: 20210305

REACTIONS (5)
  - Nasopharyngitis [Unknown]
  - Pain [Unknown]
  - Erythema [Unknown]
  - Lethargy [Unknown]
  - Off label use [Unknown]

NARRATIVE: CASE EVENT DATE: 20210305
